FAERS Safety Report 5268883-3 (Version None)
Quarter: 2007Q1

REPORT INFORMATION
  Report Type: 
  Country: None (occurrence: None)
  Receive Date: 20070319
  Receipt Date: 20070316
  Transmission Date: 20070707
  Serious: Yes (Disabling)
  Sender: FDA-Public Use
  Company Number: US-BRISTOL-MYERS SQUIBB COMPANY-13717178

PATIENT
  Age: 62 Year
  Sex: Female
  Weight: 145 kg

DRUGS (3)
  1. AVALIDE [Suspect]
     Indication: HYPERTENSION
  2. ATENOLOL [Concomitant]
  3. MULTI-VITAMIN [Concomitant]

REACTIONS (7)
  - ABDOMINAL PAIN UPPER [None]
  - ANOREXIA [None]
  - DYSGEUSIA [None]
  - DYSPEPSIA [None]
  - ERUCTATION [None]
  - FLATULENCE [None]
  - GASTRIC HYPERTONIA [None]
